FAERS Safety Report 25014694 (Version 1)
Quarter: 2025Q1

REPORT INFORMATION
  Report Type: Spontaneous
  Country: US (occurrence: US)
  Receive Date: 20250226
  Receipt Date: 20250226
  Transmission Date: 20250409
  Serious: No
  Sender: PFIZER
  Company Number: US-PFIZER INC-202500041015

PATIENT
  Age: 62 Year
  Sex: Male

DRUGS (3)
  1. IBRANCE [Suspect]
     Active Substance: PALBOCICLIB
     Indication: Breast cancer metastatic
     Dates: start: 202008
  2. LETROZOLE [Concomitant]
     Active Substance: LETROZOLE
     Dates: start: 202008
  3. LUPRON [Concomitant]
     Active Substance: LEUPROLIDE ACETATE
     Dates: start: 202008

REACTIONS (2)
  - Back pain [Not Recovered/Not Resolved]
  - Vertebral lesion [Not Recovered/Not Resolved]

NARRATIVE: CASE EVENT DATE: 20250201
